FAERS Safety Report 19731004 (Version 1)
Quarter: 2021Q3

REPORT INFORMATION
  Report Type: Spontaneous
  Country: US (occurrence: US)
  Receive Date: 20210821
  Receipt Date: 20210821
  Transmission Date: 20211014
  Serious: Yes (Other)
  Sender: FDA-Public Use
  Company Number: US-ROCHE-2890896

PATIENT
  Age: 51 Year
  Sex: Male

DRUGS (8)
  1. LIPITOR [Concomitant]
     Active Substance: ATORVASTATIN CALCIUM
  2. CIALIS [Concomitant]
     Active Substance: TADALAFIL
  3. AMLODIPINE [Concomitant]
     Active Substance: AMLODIPINE BESYLATE
  4. TAMSULOSIN [Concomitant]
     Active Substance: TAMSULOSIN
  5. MODAFINIL. [Concomitant]
     Active Substance: MODAFINIL
  6. BACLOFEN. [Concomitant]
     Active Substance: BACLOFEN
  7. OCREVUS [Suspect]
     Active Substance: OCRELIZUMAB
     Indication: PRODUCT USED FOR UNKNOWN INDICATION
     Route: 042
  8. LORATADINE. [Concomitant]
     Active Substance: LORATADINE

REACTIONS (1)
  - Inguinal hernia [Unknown]
